FAERS Safety Report 4714929-8 (Version None)
Quarter: 2005Q3

REPORT INFORMATION
  Report Type: 
  Country: None (occurrence: None)
  Receive Date: 20050713
  Receipt Date: 20050707
  Transmission Date: 20060218
  Serious: Yes (Hospitalization)
  Sender: FDA-Public Use
  Company Number: ERP05000098

PATIENT
  Age: 72 Year
  Sex: Female

DRUGS (3)
  1. MACRODANTIN [Suspect]
     Dates: start: 20050501
  2. LITHIUM CARBONATE [Suspect]
  3. FERRO-GRADUMET/AUS/(FERROUS SULFATE) [Concomitant]

REACTIONS (4)
  - DEPRESSION [None]
  - DRUG INTERACTION [None]
  - FEELING ABNORMAL [None]
  - MOOD ALTERED [None]
